FAERS Safety Report 9796020 (Version 2)
Quarter: 2014Q1

REPORT INFORMATION
  Report Type: Spontaneous
  Country: US (occurrence: US)
  Receive Date: 20140103
  Receipt Date: 20140103
  Transmission Date: 20141002
  Serious: No
  Sender: FDA-Public Use
  Company Number: US-GILEAD-2010-0034060

PATIENT
  Age: 26 Year
  Sex: Female
  Weight: 69.06 kg

DRUGS (10)
  1. CAYSTON [Suspect]
     Indication: CYSTIC FIBROSIS
     Route: 055
     Dates: start: 20101118
  2. PULMOZYME [Concomitant]
  3. ALBUTEROL SULFATE [Concomitant]
  4. ADVAIR DISKUS [Concomitant]
     Dates: start: 20090825
  5. TOBI [Concomitant]
  6. SULFAMETHOXAZOLE-TMP [Concomitant]
  7. ZITHROMAX [Concomitant]
  8. MINOCYCLINE HCL [Concomitant]
  9. ZYRTEC [Concomitant]
     Indication: HYPERSENSITIVITY
  10. ZANTAC [Concomitant]
     Dates: start: 20100129

REACTIONS (5)
  - Haemoptysis [Recovered/Resolved]
  - Cough [Unknown]
  - Dyspnoea [Unknown]
  - Chest discomfort [Unknown]
  - Liquid product physical issue [Recovered/Resolved]
